FAERS Safety Report 24417474 (Version 1)
Quarter: 2024Q4

REPORT INFORMATION
  Report Type: Spontaneous
  Country: US (occurrence: US)
  Receive Date: 20241009
  Receipt Date: 20241009
  Transmission Date: 20250114
  Serious: Yes (Hospitalization, Other)
  Sender: DR REDDYS
  Company Number: US-DRL-USA-LIT/USA/24/0014741

PATIENT
  Age: 59 Year
  Sex: Male

DRUGS (5)
  1. VASOPRESSIN [Suspect]
     Active Substance: VASOPRESSIN
     Indication: Shock
  2. NOREPINEPHRINE [Concomitant]
     Active Substance: NOREPINEPHRINE\NOREPINEPHRINE BITARTRATE
     Indication: Shock
  3. EPINEPHRINE [Concomitant]
     Active Substance: EPINEPHRINE
     Indication: Shock
  4. GLUCAGON [Concomitant]
     Active Substance: GLUCAGON
     Indication: Accidental overdose
  5. INSULIN NOS [Concomitant]
     Active Substance: INSULIN NOS
     Indication: Accidental overdose
     Dosage: HIGH DOSE?INSULIN DRIP RATE WAS INCREASED FROM 1U/KG/HR TO 6 U/KG/HR AT A RATE OF 660 UNITS/HOUR

REACTIONS (3)
  - Respiratory failure [Recovered/Resolved]
  - Drug ineffective [Recovered/Resolved]
  - Hypervolaemia [Recovered/Resolved]
